FAERS Safety Report 19824583 (Version 1)
Quarter: 2021Q3

REPORT INFORMATION
  Report Type: Report from Study
  Country: US (occurrence: US)
  Receive Date: 20210913
  Receipt Date: 20210913
  Transmission Date: 20211014
  Serious: Yes (Hospitalization)
  Sender: FDA-Public Use
  Company Number: US-SEATTLE GENETICS-2021SGN04602

PATIENT
  Age: 41 Year
  Sex: Female
  Weight: 73 kg

DRUGS (20)
  1. ZOVIRAX ACTIVE [Concomitant]
  2. PEPCID [Concomitant]
     Active Substance: FAMOTIDINE
  3. VITAMIN D3 [Concomitant]
     Active Substance: CHOLECALCIFEROL
  4. FLUTICASONE. [Concomitant]
     Active Substance: FLUTICASONE
  5. SUDAFED [Concomitant]
     Active Substance: PSEUDOEPHEDRINE HYDROCHLORIDE
  6. NIVOLUMAB [Suspect]
     Active Substance: NIVOLUMAB
     Indication: HODGKIN^S DISEASE
     Dosage: 360 MG
     Route: 042
     Dates: start: 20210203
  7. TUMS [Concomitant]
     Active Substance: CALCIUM CARBONATE
  8. MIRALAX [Concomitant]
     Active Substance: POLYETHYLENE GLYCOL 3350
  9. TYLENOL [Concomitant]
     Active Substance: ACETAMINOPHEN
  10. BRENTUXIMAB VEDOTIN [Suspect]
     Active Substance: BRENTUXIMAB VEDOTIN
     Indication: HODGKIN^S DISEASE
     Dosage: UNK
     Route: 042
     Dates: start: 20210803
  11. IPILIMUMAB [Suspect]
     Active Substance: IPILIMUMAB
     Indication: HODGKIN^S DISEASE
  12. ZYRTEC [Concomitant]
     Active Substance: CETIRIZINE HYDROCHLORIDE
  13. PROTONIX [Concomitant]
     Active Substance: PANTOPRAZOLE SODIUM
  14. COMPAZINE [Concomitant]
     Active Substance: PROCHLORPERAZINE MALEATE
  15. SYNTHROID [Concomitant]
     Active Substance: LEVOTHYROXINE SODIUM
  16. SENOKOT [Concomitant]
     Active Substance: SENNOSIDES
  17. PERIDEX [CHLORHEXIDINE GLUCONATE] [Concomitant]
  18. MICRO K [Concomitant]
  19. DEXAMETHASONE. [Concomitant]
     Active Substance: DEXAMETHASONE
  20. LOVENOX [LEVOFLOXACIN] [Concomitant]
     Active Substance: LEVOFLOXACIN

REACTIONS (2)
  - Muscular weakness [Recovered/Resolved]
  - Peripheral sensory neuropathy [Recovered/Resolved]

NARRATIVE: CASE EVENT DATE: 20210816
